FAERS Safety Report 25323176 (Version 1)
Quarter: 2025Q2

REPORT INFORMATION
  Report Type: Other
  Country: US (occurrence: US)
  Receive Date: 20250516
  Receipt Date: 20250516
  Transmission Date: 20250717
  Serious: No
  Sender: SIGA TECHNOLOGIES, INC.
  Company Number: US-SIGA Technologies, Inc.-2176823

PATIENT
  Age: 41 Year
  Sex: Male
  Weight: 80.0 kg

DRUGS (2)
  1. TPOXX [Suspect]
     Active Substance: TECOVIRIMAT
     Indication: Monkeypox
  2. emtricitabine and tenofovir alafenamide/dolutegravir for HIV [Concomitant]

REACTIONS (1)
  - Decreased appetite [Unknown]
